FAERS Safety Report 13850934 (Version 2)
Quarter: 2017Q3

REPORT INFORMATION
  Report Type: Report from Study
  Country: JP (occurrence: JP)
  Receive Date: 20170810
  Receipt Date: 20170822
  Transmission Date: 20171127
  Serious: Yes (Death)
  Sender: FDA-Public Use
  Company Number: JP-ROCHE-1975713

PATIENT

DRUGS (2)
  1. BEVACIZUMAB. [Suspect]
     Active Substance: BEVACIZUMAB
     Indication: UTERINE LEIOMYOSARCOMA
     Dosage: DAYS 1, 8 AND 15, EVERY 4 WEEKS
     Route: 065
  2. TEMOZOLOMIDE. [Suspect]
     Active Substance: TEMOZOLOMIDE
     Indication: UTERINE LEIOMYOSARCOMA
     Dosage: 80 MG/BODY/DAY
     Route: 065

REACTIONS (1)
  - Perforation [Fatal]
